FAERS Safety Report 4969106-2 (Version None)
Quarter: 2006Q2

REPORT INFORMATION
  Report Type: 
  Country: None (occurrence: None)
  Receive Date: 20060405
  Receipt Date: 20060323
  Transmission Date: 20061013
  Serious: No
  Sender: FDA-Public Use
  Company Number: 223429

PATIENT
  Age: 48 Year
  Sex: Female

DRUGS (2)
  1. RAPTIVA [Suspect]
     Indication: PSORIASIS
     Dosage: 0.5 ML, SUBCUTANEOUS
     Route: 058
     Dates: start: 20050703
  2. TRIAMCINOLONE [Concomitant]

REACTIONS (6)
  - CELLULITIS [None]
  - PAIN IN EXTREMITY [None]
  - PURPURA [None]
  - TENDON RUPTURE [None]
  - TREATMENT NONCOMPLIANCE [None]
  - WHITE BLOOD CELL COUNT DECREASED [None]
